FAERS Safety Report 4856736-1 (Version None)
Quarter: 2005Q4

REPORT INFORMATION
  Report Type: 
  Country: None (occurrence: None)
  Receive Date: 20051219
  Receipt Date: 20050117
  Transmission Date: 20060501
  Serious: No
  Sender: FDA-Public Use
  Company Number: US-GLAXOSMITHKLINE-A0541043A

PATIENT
  Age: 30 Year
  Sex: Female

DRUGS (2)
  1. NICODERM CQ [Suspect]
     Dates: start: 20050101
  2. NICODERM CQ [Suspect]
     Dates: start: 20050114

REACTIONS (7)
  - ANGER [None]
  - CONDITION AGGRAVATED [None]
  - HEART RATE INCREASED [None]
  - MUSCULOSKELETAL STIFFNESS [None]
  - NASOPHARYNGITIS [None]
  - NERVOUSNESS [None]
  - NICOTINE DEPENDENCE [None]
